FAERS Safety Report 7723991-X (Version None)
Quarter: 2011Q3

REPORT INFORMATION
  Report Type: 
  Country: None (occurrence: None)
  Receive Date: 20110901
  Receipt Date: 20110825
  Transmission Date: 20111222
  Serious: Yes (Hospitalization)
  Sender: FDA-Public Use
  Company Number: US-ACTELION-A-US2010-34141

PATIENT

DRUGS (2)
  1. TRACLEER [Suspect]
     Dosage: UNK
     Route: 048
  2. TRACLEER [Suspect]
     Indication: PULMONARY ARTERIAL HYPERTENSION
     Route: 048
     Dates: start: 20080226, end: 20100204

REACTIONS (8)
  - ANAEMIA [None]
  - HEPATIC FUNCTION ABNORMAL [None]
  - DYSPNOEA [None]
  - STAPHYLOCOCCAL INFECTION [None]
  - MYOCARDIAL INFARCTION [None]
  - FATIGUE [None]
  - PNEUMONIA [None]
  - URINARY TRACT INFECTION [None]
